FAERS Safety Report 13105023 (Version 1)
Quarter: 2017Q1

REPORT INFORMATION
  Report Type: Spontaneous
  Country: US (occurrence: US)
  Receive Date: 20170110
  Receipt Date: 20170110
  Transmission Date: 20170428
  Serious: No
  Sender: FDA-Public Use
  Company Number: None

PATIENT
  Sex: Female
  Weight: 63.56 kg

DRUGS (2)
  1. CAPECITABINE 500 MG [Suspect]
     Active Substance: CAPECITABINE
     Indication: BRAIN NEOPLASM
     Dosage: 1500 MG DAILY FOR 14 DAYS EVER 21 PO
     Route: 048
     Dates: start: 20150929
  2. CAPECITABINE 500 MG [Suspect]
     Active Substance: CAPECITABINE
     Indication: BREAST NEOPLASM
     Dosage: 1500 MG DAILY FOR 14 DAYS EVER 21 PO
     Route: 048
     Dates: start: 20150929

REACTIONS (3)
  - Hypoaesthesia [None]
  - Haemoglobin decreased [None]
  - White blood cell count decreased [None]
